FAERS Safety Report 4915800-9 (Version None)
Quarter: 2006Q1

REPORT INFORMATION
  Report Type: 
  Country: None (occurrence: None)
  Receive Date: 20060217
  Receipt Date: 20060208
  Transmission Date: 20060701
  Serious: Yes (Hospitalization)
  Sender: FDA-Public Use
  Company Number: US-ROCHE-435846

PATIENT
  Sex: Female

DRUGS (5)
  1. BONIVA [Suspect]
     Indication: DRUG USE FOR UNKNOWN INDICATION
     Route: 048
  2. UNCLASSIFIED DRUG [Concomitant]
     Dosage: DRUG NAME REPORTED AS ^ACIFEX^.
     Route: 048
  3. ZOLOFT [Concomitant]
     Route: 048
  4. CLARINEX [Concomitant]
     Route: 048
  5. NASONEX [Concomitant]
     Route: 065

REACTIONS (3)
  - HYPERSENSITIVITY [None]
  - HYPOAESTHESIA [None]
  - SINUSITIS [None]
